FAERS Safety Report 4778130-4 (Version None)
Quarter: 2005Q3

REPORT INFORMATION
  Report Type: 
  Country: None (occurrence: None)
  Receive Date: 20050922
  Receipt Date: 20050919
  Transmission Date: 20060218
  Serious: Yes (Hospitalization, Other)
  Sender: FDA-Public Use
  Company Number: USA-2005-0021284

PATIENT
  Age: 49 Year
  Sex: Male

DRUGS (6)
  1. OXYCONTIN [Suspect]
     Indication: CANCER PAIN
     Dosage: 80 MG, TID, ORAL
     Route: 048
     Dates: start: 20040901, end: 20050808
  2. OXYCONTIN [Suspect]
     Indication: PAIN
     Dosage: 80 MG, TID, ORAL
     Route: 048
     Dates: start: 20040901, end: 20050808
  3. OXYCODONE HCL [Suspect]
     Indication: CANCER PAIN
     Dosage: 5 MG, Q8H, ORAL
     Route: 048
  4. VALIUM [Concomitant]
  5. ATIVAN [Concomitant]
  6. ZYRTEC [Concomitant]

REACTIONS (8)
  - BLOOD CHOLESTEROL INCREASED [None]
  - DIZZINESS [None]
  - EUPHORIC MOOD [None]
  - JOINT SWELLING [None]
  - MYOCARDIAL INFARCTION [None]
  - OEDEMA PERIPHERAL [None]
  - TACHYCARDIA [None]
  - VENOUS THROMBOSIS [None]
